FAERS Safety Report 5898233-0 (Version None)
Quarter: 2008Q3

REPORT INFORMATION
  Report Type: 
  Country: None (occurrence: None)
  Receive Date: 20080925
  Receipt Date: 20080207
  Transmission Date: 20090109
  Serious: No
  Sender: FDA-Public Use
  Company Number: A0506402A

PATIENT
  Age: 40 Year
  Sex: Female

DRUGS (2)
  1. WELLBUTRIN XL [Suspect]
     Indication: DEPRESSION
     Dosage: 300MG PER DAY
     Route: 048
     Dates: start: 20031201
  2. BENADRYL [Concomitant]

REACTIONS (9)
  - ABDOMINAL PAIN UPPER [None]
  - AMNESIA [None]
  - ANXIETY [None]
  - DEPRESSED MOOD [None]
  - INITIAL INSOMNIA [None]
  - INSOMNIA [None]
  - MIDDLE INSOMNIA [None]
  - THERAPEUTIC RESPONSE DECREASED [None]
  - TREMOR [None]
